FAERS Safety Report 9838572 (Version 2)
Quarter: 2014Q1

REPORT INFORMATION
  Report Type: Spontaneous
  Country: JP (occurrence: None)
  Receive Date: 20140116
  Receipt Date: 20140122
  Transmission Date: 20141002
  Serious: Yes (Other)
  Sender: FDA-Public Use
  Company Number: KAD201401-000016

PATIENT
  Age: 58 Year
  Sex: Male

DRUGS (4)
  1. RIBAVIRIN (RIBAVIRIN) [Suspect]
     Indication: CHRONIC HEPATITIS C
     Dates: start: 20121016
  2. TELAPREVIR (TELAPREVIR) [Suspect]
     Indication: CHRONIC HEPATITIS C
     Dates: start: 20121016
  3. PEGINTERFERON ALFA 2-B [Suspect]
     Indication: CHRONIC HEPATITIS C
     Dates: start: 20121016
  4. METRONIDAZOLE (METRONIDAZOLE) [Concomitant]

REACTIONS (6)
  - Hepatic amoebiasis [None]
  - Decreased appetite [None]
  - Abdominal pain upper [None]
  - Colitis [None]
  - Hepatomegaly [None]
  - Hepatic rupture [None]
